FAERS Safety Report 8610564-X (Version None)
Quarter: 2012Q3

REPORT INFORMATION
  Report Type: 
  Country: None (occurrence: None)
  Receive Date: 20120822
  Receipt Date: 20120821
  Transmission Date: 20120928
  Serious: Yes (Other)
  Sender: FDA-Public Use
  Company Number: CA-BAYER-2012-086003

PATIENT
  Age: 54 Year
  Sex: Female
  Weight: 61 kg

DRUGS (1)
  1. AVELOX [Suspect]
     Dosage: 2 DF, QD

REACTIONS (4)
  - PERIARTHRITIS [None]
  - TENDON PAIN [None]
  - MYALGIA [None]
  - GAIT DISTURBANCE [None]
